FAERS Safety Report 5454097-0 (Version None)
Quarter: 2007Q3

REPORT INFORMATION
  Report Type: 
  Country: None (occurrence: None)
  Receive Date: 20070917
  Receipt Date: 20070228
  Transmission Date: 20080115
  Serious: Yes (Other)
  Sender: FDA-Public Use
  Company Number: US-ASTRAZENECA-2006UW10872

PATIENT
  Sex: Female
  Weight: 104.5 kg

DRUGS (5)
  1. SEROQUEL [Suspect]
     Indication: BIPOLAR DISORDER
     Route: 048
     Dates: start: 20000101, end: 20030101
  2. RISPERDAL [Suspect]
     Dates: start: 20030101
  3. ABILIFY [Concomitant]
     Dates: start: 20040101
  4. HALDOL [Concomitant]
     Dates: start: 19850101
  5. PROLIXIN [Concomitant]
     Dates: start: 19940101

REACTIONS (2)
  - METABOLIC SYNDROME [None]
  - NEUROLEPTIC MALIGNANT SYNDROME [None]
